FAERS Safety Report 17848629 (Version 7)
Quarter: 2020Q4

REPORT INFORMATION
  Report Type: Report from Study
  Country: None (occurrence: US)
  Receive Date: 20200602
  Receipt Date: 20201020
  Transmission Date: 20210113
  Serious: Yes (Hospitalization, Other)
  Sender: FDA-Public Use
  Company Number: US-INSMED, INC.-US-INS-20-01088

PATIENT
  Age: 75 Year
  Sex: Female

DRUGS (1)
  1. ARIKAYCE [Suspect]
     Active Substance: AMIKACIN
     Indication: BACTERIAL INFECTION
     Route: 055
     Dates: start: 20200312, end: 202008

REACTIONS (8)
  - Respiratory tract infection fungal [Unknown]
  - International normalised ratio abnormal [Unknown]
  - Tooth discolouration [Recovered/Resolved]
  - Aphonia [Not Recovered/Not Resolved]
  - Acute kidney injury [Unknown]
  - Oral fungal infection [Unknown]
  - Therapy interrupted [Unknown]
  - White blood cell count decreased [Not Recovered/Not Resolved]

NARRATIVE: CASE EVENT DATE: 2020
